FAERS Safety Report 8169572-8 (Version None)
Quarter: 2012Q1

REPORT INFORMATION
  Report Type: 
  Country: None (occurrence: None)
  Receive Date: 20120222
  Receipt Date: 20120213
  Transmission Date: 20120608
  Serious: Yes (Other)
  Sender: FDA-Public Use
  Company Number: TPA2011A05359

PATIENT
  Age: 74 Year
  Sex: Female
  Weight: 99.7913 kg

DRUGS (11)
  1. INSULIN DETEMIR (INSULIN DETEMIR) [Concomitant]
  2. VERAPAMIL [Concomitant]
  3. ISOSORBIDE MONONITRATE [Concomitant]
  4. METHYLPREDNISOLONE [Concomitant]
  5. GLIMEPIRIDE [Concomitant]
  6. LEVOTHYROXINE SODIUM [Concomitant]
  7. TRIAMTERENE-HYDROCHLOROTHIAZID (HYDROCHLOROTHIAZIDE, TRIAMTERENE) [Concomitant]
  8. ACTOS [Suspect]
     Indication: TYPE 2 DIABETES MELLITUS
     Dosage: 30 MG, 1 IN 1 D ; 45 MG 1 IN 1 D
     Dates: start: 20031119, end: 20040206
  9. ACTOS [Suspect]
     Indication: TYPE 2 DIABETES MELLITUS
     Dosage: 30 MG, 1 IN 1 D ; 45 MG 1 IN 1 D
     Dates: start: 20040206, end: 20110801
  10. ASPIRIN [Concomitant]
  11. EZETIMIBE-SIMVASTATIN (SIMVASTATIN, EZETIMIBE) [Concomitant]

REACTIONS (3)
  - NOCTURIA [None]
  - BLADDER CANCER [None]
  - HAEMATURIA [None]
